FAERS Safety Report 9305732 (Version 2)
Quarter: 2013Q2

REPORT INFORMATION
  Report Type: Spontaneous
  Country: BR (occurrence: None)
  Receive Date: 20130514
  Receipt Date: 20130514
  Transmission Date: 20140414
  Serious: Yes (Other)
  Sender: FDA-Public Use
  Company Number: 2013035752

PATIENT
  Sex: Male

DRUGS (1)
  1. CYTOGAM [Suspect]
     Indication: CYTOMEGALOVIRUS INFECTION
     Dosage: 100 MG/KG 1X/WEEK, X 3 DOSES

REACTIONS (7)
  - Sepsis syndrome [None]
  - Drug ineffective for unapproved indication [None]
  - Caesarean section [None]
  - Maternal drugs affecting foetus [None]
  - Foetal growth restriction [None]
  - Premature baby [None]
  - Cytomegalovirus test positive [None]
